FAERS Safety Report 14374931 (Version 2)
Quarter: 2018Q1

REPORT INFORMATION
  Report Type: Spontaneous
  Country: US (occurrence: US)
  Receive Date: 20180111
  Receipt Date: 20180122
  Transmission Date: 20180509
  Serious: No
  Sender: FDA-Public Use
  Company Number: US-PFIZER INC-2018009135

PATIENT
  Sex: Female

DRUGS (1)
  1. ADVIL [Suspect]
     Active Substance: IBUPROFEN
     Indication: PAIN
     Dosage: UNK
     Route: 048

REACTIONS (5)
  - Product colour issue [Unknown]
  - Gastrooesophageal reflux disease [Unknown]
  - Poor quality drug administered [Unknown]
  - Malaise [Unknown]
  - Vomiting [Unknown]
